FAERS Safety Report 12345482 (Version 2)
Quarter: 2016Q4

REPORT INFORMATION
  Report Type: Spontaneous
  Country: US (occurrence: US)
  Receive Date: 20160508
  Receipt Date: 20161222
  Transmission Date: 20170207
  Serious: Yes (Other)
  Sender: FDA-Public Use
  Company Number: US-009507513-1605USA000657

PATIENT
  Age: 38 Year
  Sex: Male
  Weight: 89.8 kg

DRUGS (1)
  1. BELSOMRA [Suspect]
     Active Substance: SUVOREXANT
     Indication: INSOMNIA
     Dosage: 10 MG, QD
     Route: 048
     Dates: start: 201501, end: 201512

REACTIONS (2)
  - Sleep paralysis [Recovered/Resolved]
  - Cataplexy [Recovered/Resolved]

NARRATIVE: CASE EVENT DATE: 201512
